FAERS Safety Report 6231376-0 (Version None)
Quarter: 2009Q2

REPORT INFORMATION
  Report Type: 
  Country: None (occurrence: None)
  Receive Date: 20090612
  Receipt Date: 20090603
  Transmission Date: 20091009
  Serious: Yes (Hospitalization)
  Sender: FDA-Public Use
  Company Number: 1000006718

PATIENT
  Age: 84 Year
  Sex: Female

DRUGS (7)
  1. NEBIVOLOL HCL [Suspect]
     Dosage: 5 MG (5 MG, 1 IN 1 D), ORAL
     Route: 048
     Dates: start: 20090410, end: 20090506
  2. PERINDOPRIL ERBUMINE [Suspect]
     Dosage: ORAL
     Route: 048
  3. ALDALIX [Suspect]
     Dosage: 50 MG/20 MG DAILY, ORAL
     Route: 048
     Dates: end: 20090506
  4. MINISINTROM [Suspect]
     Dosage: 0.5 MG (1 MG, 1 IN 2 D), ORAL
     Route: 048
     Dates: start: 20090410, end: 20090506
  5. ALLOPURINOL [Suspect]
     Dosage: ORAL
     Route: 048
     Dates: start: 20090415, end: 20090501
  6. DESLORATADINE [Suspect]
     Dosage: ORAL
     Route: 048
     Dates: start: 20090501, end: 20090505
  7. FUROSEMIDE [Concomitant]

REACTIONS (8)
  - AGRANULOCYTOSIS [None]
  - ASTHENIA [None]
  - BONE MARROW FAILURE [None]
  - COUGH [None]
  - DIARRHOEA [None]
  - FOLATE DEFICIENCY [None]
  - HYPERTHERMIA [None]
  - VITAMIN B12 DEFICIENCY [None]
